FAERS Safety Report 7749095-8 (Version None)
Quarter: 2011Q3

REPORT INFORMATION
  Report Type: 
  Country: None (occurrence: None)
  Receive Date: 20110914
  Receipt Date: 20110908
  Transmission Date: 20111222
  Serious: Yes (Hospitalization)
  Sender: FDA-Public Use
  Company Number: CZ-JNJFOC-20110811799

PATIENT
  Age: 22 Year
  Sex: Female

DRUGS (4)
  1. AMISULPRIDE [Concomitant]
  2. RISPERDAL CONSTA [Suspect]
     Indication: SCHIZOPHRENIA
     Route: 030
  3. ORAL CONTRACEPTIVE [Suspect]
     Indication: CONTRACEPTION
     Route: 048
     Dates: start: 20110801
  4. CLOZAPINE [Concomitant]
     Route: 048

REACTIONS (1)
  - EMBOLISM [None]
